FAERS Safety Report 9769432 (Version 1)
Quarter: 2013Q3

REPORT INFORMATION
  Report Type: Spontaneous
  Country: PT (occurrence: None)
  Receive Date: 20130909
  Receipt Date: 20130909
  Transmission Date: 20140515
  Serious: Yes (Life-Threatening, Other)
  Sender: FDA-Public Use
  Company Number: PT-20120002

PATIENT
  Age: 47 Year
  Sex: Female

DRUGS (5)
  1. DOTAREM (GADOTERIC ACID) [Suspect]
     Indication: NUCLEAR MAGNETIC RESONANCE IMAGING
     Route: 042
     Dates: start: 20120120, end: 20120120
  2. MILNACIPRAM (NILNACIPRAN) (MILNACIPRAN) [Concomitant]
  3. PREGABALIN (PREGABALIN) (PREGABALIN) [Concomitant]
  4. LEVOTHYROXINE SODIUM (LEVOTHYROXINE SODIUM) (LEVOTHYROXINE SODIUM) [Concomitant]
  5. CYCLOBENZAPRINE (CYCLOBENZAPRINE) (CYCLOBENZAPRINE) [Concomitant]

REACTIONS (8)
  - Anaphylactic shock [None]
  - Erythema [None]
  - Enanthema [None]
  - Oral mucosal erythema [None]
  - Dysphagia [None]
  - Dysphonia [None]
  - Dyspnoea [None]
  - Erythema [None]
